FAERS Safety Report 4554043-8 (Version None)
Quarter: 2005Q1

REPORT INFORMATION
  Report Type: 
  Country: None (occurrence: None)
  Receive Date: 20050118
  Receipt Date: 20050111
  Transmission Date: 20050727
  Serious: Yes (Life-Threatening, Hospitalization, Disabling)
  Sender: FDA-Public Use
  Company Number: US-MERCK-0501USA00999

PATIENT
  Age: 52 Year
  Sex: Male

DRUGS (8)
  1. VIOXX [Suspect]
     Indication: ARTHRITIS
     Route: 048
     Dates: start: 20020313
  2. AMITRIPTYLINE HYDROCHLORIDE [Concomitant]
     Route: 065
  3. LASIX [Concomitant]
     Route: 065
  4. OXYCONTIN [Concomitant]
     Route: 065
  5. NITROSTAT [Concomitant]
     Route: 065
  6. MOBIC [Concomitant]
     Route: 065
  7. [THERAPY UNSPECIFIED] [Concomitant]
     Route: 065
  8. NEURONTIN [Concomitant]
     Route: 065

REACTIONS (4)
  - ANEURYSM [None]
  - CEREBROVASCULAR ACCIDENT [None]
  - MYOCARDIAL INFARCTION [None]
  - PAIN [None]
